FAERS Safety Report 7054548-4 (Version None)
Quarter: 2010Q4

REPORT INFORMATION
  Report Type: 
  Country: None (occurrence: None)
  Receive Date: 20101020
  Receipt Date: 20101012
  Transmission Date: 20110411
  Serious: Yes (Hospitalization)
  Sender: FDA-Public Use
  Company Number: JP-ABBOTT-10P-087-0670179-00

PATIENT
  Age: 76 Year
  Sex: Male

DRUGS (2)
  1. LEUPLIN FOR INJECTION 3.75 [Suspect]
     Indication: PROSTATE CANCER
     Route: 058
     Dates: start: 20100709
  2. BICALUTAMIDE [Suspect]
     Indication: PROSTATE CANCER
     Route: 048
     Dates: start: 20100709, end: 20100904

REACTIONS (1)
  - LIVER DISORDER [None]
